FAERS Safety Report 4696791-5 (Version None)
Quarter: 2005Q2

REPORT INFORMATION
  Report Type: 
  Country: None (occurrence: None)
  Receive Date: 20050622
  Receipt Date: 20050620
  Transmission Date: 20051028
  Serious: Yes (Death, Hospitalization)
  Sender: FDA-Public Use
  Company Number: PHRM2005FR01881

PATIENT
  Age: 83 Year
  Sex: Male
  Weight: 58 kg

DRUGS (9)
  1. VOLTAREN [Suspect]
     Dosage: 50 MG, QD
     Route: 048
     Dates: end: 20050408
  2. CORDARONE [Concomitant]
  3. KARDEGIC [Concomitant]
     Route: 048
  4. TEMESTA [Concomitant]
     Route: 048
  5. HEMIGOXINE NATIVELLE [Suspect]
     Dosage: 0.125 MG, QD
     Route: 048
     Dates: end: 20050408
  6. DEBRIDAT [Suspect]
     Dosage: 1 DF, QD
     Route: 048
     Dates: end: 20050408
  7. DAFALGAN [Suspect]
     Dosage: 1 G/DAY
     Route: 048
     Dates: end: 20050408
  8. ZOLOFT [Suspect]
     Dosage: 1 DF, QD
     Route: 048
     Dates: start: 20050401, end: 20050408
  9. PLAVIX [Suspect]
     Dosage: 75 MG, QD
     Route: 048
     Dates: end: 20050408

REACTIONS (14)
  - C-REACTIVE PROTEIN INCREASED [None]
  - CONFUSIONAL STATE [None]
  - DISTURBANCE IN ATTENTION [None]
  - HAEMATOCRIT DECREASED [None]
  - HYPONATRAEMIA [None]
  - INFLAMMATION [None]
  - INTUBATION [None]
  - LUNG DISORDER [None]
  - NERVOUS SYSTEM DISORDER [None]
  - PROTEIN TOTAL DECREASED [None]
  - PYREXIA [None]
  - QUADRIPARESIS [None]
  - SEDATIVE THERAPY [None]
  - URINE SODIUM DECREASED [None]
